FAERS Safety Report 5590102-9 (Version None)
Quarter: 2008Q1

REPORT INFORMATION
  Report Type: 
  Country: None (occurrence: None)
  Receive Date: 20080114
  Receipt Date: 20071112
  Transmission Date: 20080703
  Serious: No
  Sender: FDA-Public Use
  Company Number: US-ABBOTT-07P-163-0425058-00

PATIENT
  Sex: Female
  Weight: 10.896 kg

DRUGS (1)
  1. OMNICEF ORAL SUSPENSION [Suspect]
     Indication: SINUSITIS
     Route: 048
     Dates: start: 20071106

REACTIONS (1)
  - DIARRHOEA [None]
